FAERS Safety Report 17330878 (Version 1)
Quarter: 2020Q1

REPORT INFORMATION
  Report Type: Spontaneous
  Country: GB (occurrence: GB)
  Receive Date: 20200128
  Receipt Date: 20200128
  Transmission Date: 20200409
  Serious: Yes (Death, Other)
  Sender: FDA-Public Use
  Company Number: GB-MYLANLABS-2020M1009776

PATIENT
  Age: 61 Year
  Sex: Female

DRUGS (16)
  1. ACCRETE D3 [Concomitant]
     Active Substance: CALCIUM CARBONATE\CHOLECALCIFEROL
     Dosage: UNK
  2. CODEINE [Concomitant]
     Active Substance: CODEINE
     Indication: PAIN
     Dosage: UNK
  3. ALENDRONIC ACID [Concomitant]
     Active Substance: ALENDRONIC ACID
     Indication: OSTEOPOROSIS
     Dosage: UNK
  4. AMISULPRIDE [Suspect]
     Active Substance: AMISULPRIDE
     Indication: SCHIZOPHRENIA
     Dosage: 800 MILLIGRAM, QD
  5. ATORVASTATIN [Concomitant]
     Active Substance: ATORVASTATIN
     Dosage: UNK
  6. QUETIAPINE. [Suspect]
     Active Substance: QUETIAPINE
     Indication: SCHIZOPHRENIA
     Dosage: 800 MILLIGRAM, QD
  7. FERROUS FUMARATE [Concomitant]
     Active Substance: FERROUS FUMARATE
     Indication: IRON DEFICIENCY ANAEMIA
     Dosage: UNK
  8. PREDNISOLONE. [Concomitant]
     Active Substance: PREDNISOLONE
     Dosage: UNK
  9. AMITRIPTYLINE [Concomitant]
     Active Substance: AMITRIPTYLINE
     Indication: NEURALGIA
     Dosage: UNK
  10. CASSIA SENNA [Concomitant]
     Active Substance: HERBALS\SENNOSIDES
  11. RAMIPRIL. [Concomitant]
     Active Substance: RAMIPRIL
     Indication: HYPERTENSION
     Dosage: UNK
  12. SODIUM VALPROATE [Concomitant]
     Active Substance: VALPROATE SODIUM
     Indication: BIPOLAR DISORDER
     Dosage: UNK
  13. CLOPIDOGREL [Concomitant]
     Active Substance: CLOPIDOGREL BISULFATE
     Dosage: UNK
  14. PARACETAMOL [Concomitant]
     Active Substance: ACETAMINOPHEN
     Indication: PAIN
     Dosage: UNK
  15. BISOPROLOL [Concomitant]
     Active Substance: BISOPROLOL
     Indication: HYPERTENSION
     Dosage: UNK
  16. LANSOPRAZOLE. [Concomitant]
     Active Substance: LANSOPRAZOLE
     Indication: DUODENAL ULCER
     Dosage: UNK

REACTIONS (2)
  - Toxicity to various agents [Fatal]
  - Prescribed overdose [Unknown]
